FAERS Safety Report 4311289-1 (Version None)
Quarter: 2004Q1

REPORT INFORMATION
  Report Type: 
  Country: None (occurrence: None)
  Receive Date: 20040304
  Receipt Date: 20031106
  Transmission Date: 20041129
  Serious: Yes (Disabling)
  Sender: FDA-Public Use
  Company Number: GB-GLAXOSMITHKLINE-B0314174A

PATIENT
  Age: 70 Year
  Sex: Male

DRUGS (3)
  1. AVODART [Suspect]
     Indication: BENIGN PROSTATIC HYPERPLASIA
     Dosage: 500MCG PER DAY
     Route: 048
     Dates: start: 20030924
  2. FLUTICASONE PROPIONATE [Concomitant]
     Indication: NASAL CONGESTION
     Dosage: 50MCG AS REQUIRED
     Dates: start: 20010101
  3. IBUPROFEN [Concomitant]
     Indication: PAIN IN EXTREMITY
     Dosage: 400MG THREE TIMES PER DAY
     Route: 048
     Dates: start: 20010101

REACTIONS (1)
  - HEADACHE [None]
